FAERS Safety Report 25810339 (Version 1)
Quarter: 2025Q3

REPORT INFORMATION
  Report Type: Spontaneous
  Country: US (occurrence: US)
  Receive Date: 20250917
  Receipt Date: 20250917
  Transmission Date: 20251021
  Serious: No
  Sender: KVK-TECH
  Company Number: US-KVK-TECH, INC-20240900142

PATIENT

DRUGS (4)
  1. LOMAIRA [Suspect]
     Active Substance: PHENTERMINE HYDROCHLORIDE
     Indication: Weight decreased
     Route: 065
     Dates: start: 20240826
  2. LOMAIRA [Suspect]
     Active Substance: PHENTERMINE HYDROCHLORIDE
     Route: 065
     Dates: start: 2024
  3. LOMAIRA [Suspect]
     Active Substance: PHENTERMINE HYDROCHLORIDE
     Route: 065
     Dates: start: 2024
  4. LOMAIRA [Suspect]
     Active Substance: PHENTERMINE HYDROCHLORIDE
     Route: 065

REACTIONS (2)
  - Product dose omission issue [Unknown]
  - Product packaging quantity issue [Unknown]

NARRATIVE: CASE EVENT DATE: 20240101
